FAERS Safety Report 19955273 (Version 4)
Quarter: 2021Q4

REPORT INFORMATION
  Report Type: Report from Study
  Country: FR (occurrence: FR)
  Receive Date: 20211013
  Receipt Date: 20211215
  Transmission Date: 20220303
  Serious: Yes (Hospitalization, Other)
  Sender: FDA-Public Use
  Company Number: FR-BRISTOL-MYERS SQUIBB COMPANY-BMS-2021-100383

PATIENT
  Age: 76 Year
  Sex: Male
  Weight: 73 kg

DRUGS (9)
  1. RELATLIMAB [Suspect]
     Active Substance: RELATLIMAB
     Indication: Hepatocellular carcinoma
     Dosage: 480 MILLIGRAM
     Route: 042
     Dates: start: 20210527, end: 20210527
  2. NIVOLUMAB [Suspect]
     Active Substance: NIVOLUMAB
     Indication: Hepatocellular carcinoma
     Dosage: 480 MILLIGRAM
     Route: 042
     Dates: start: 20210527, end: 20210527
  3. CANDESARTAN [Concomitant]
     Active Substance: CANDESARTAN
     Indication: Product used for unknown indication
     Dosage: 32 MILLIGRAM
     Route: 048
     Dates: start: 2006
  4. LEVOTHYROXINE [Concomitant]
     Active Substance: LEVOTHYROXINE
     Indication: Product used for unknown indication
     Dosage: 125 MICROGRAM
     Route: 048
     Dates: start: 1980
  5. LERCANIDIPINE [Concomitant]
     Active Substance: LERCANIDIPINE
     Indication: Product used for unknown indication
     Dosage: 20 MILLIGRAM
     Route: 048
     Dates: start: 2006
  6. TRAMADOL [Concomitant]
     Active Substance: TRAMADOL
     Indication: Myalgia
     Dosage: 100 MILLIGRAM
     Route: 048
     Dates: start: 20210609
  7. REVAXIS [Concomitant]
     Active Substance: DIPHTHERIA AND TETANUS TOXOIDS AND POLIOVIRUS VACCINE ANTIGENS
     Indication: Prophylaxis
     Dosage: UNK
     Route: 030
     Dates: start: 20210621
  8. PFIZER-BIONTECH COVID-19 VACCINE [Concomitant]
     Active Substance: TOZINAMERAN
     Indication: Prophylaxis
     Dosage: UNK
     Route: 065
     Dates: start: 20210401
  9. PFIZER-BIONTECH COVID-19 VACCINE [Concomitant]
     Active Substance: TOZINAMERAN
     Dosage: UNK
     Route: 065
     Dates: start: 202105

REACTIONS (4)
  - Sjogren^s syndrome [Recovered/Resolved]
  - Interstitial lung disease [Recovered/Resolved]
  - Condition aggravated [Recovered/Resolved]
  - Polymyalgia rheumatica [Recovered/Resolved]

NARRATIVE: CASE EVENT DATE: 20210617
